FAERS Safety Report 6931797-4 (Version None)
Quarter: 2010Q3

REPORT INFORMATION
  Report Type: 
  Country: None (occurrence: None)
  Receive Date: 20100819
  Receipt Date: 20100810
  Transmission Date: 20110219
  Serious: Yes (Hospitalization)
  Sender: FDA-Public Use
  Company Number: US-BIOGENIDEC-2010BI028065

PATIENT
  Age: 48 Year
  Sex: Male

DRUGS (4)
  1. AVONEX [Suspect]
     Indication: MULTIPLE SCLEROSIS
     Route: 030
     Dates: start: 20071101
  2. MEDICATIONS (NOS) [Concomitant]
     Indication: CONVULSION
  3. MEDICATIONS (NOS) [Concomitant]
     Indication: ATTENTION DEFICIT/HYPERACTIVITY DISORDER
  4. MEDICATIONS (NOS) [Concomitant]
     Indication: MIGRAINE

REACTIONS (6)
  - ANGER [None]
  - CONVULSION [None]
  - GENERAL SYMPTOM [None]
  - PAIN [None]
  - STRESS FRACTURE [None]
  - SUICIDAL IDEATION [None]
